FAERS Safety Report 19610204 (Version 1)
Quarter: 2021Q3

REPORT INFORMATION
  Report Type: Spontaneous
  Country: US (occurrence: US)
  Receive Date: 20210726
  Receipt Date: 20210726
  Transmission Date: 20211014
  Serious: Yes (Other)
  Sender: FDA-Public Use
  Company Number: US-MYLANLABS-2021M1045068

PATIENT
  Age: 41 Year
  Sex: Male

DRUGS (8)
  1. ESOMEPRAZOLE. [Concomitant]
     Active Substance: ESOMEPRAZOLE MAGNESIUM
     Indication: REFLUX LARYNGITIS
     Dosage: 40 MILLIGRAM, QD
     Route: 065
  2. FLUTICASONE PROPIONATE/SALMETEROL XINAFOATE [Suspect]
     Active Substance: FLUTICASONE PROPIONATE\SALMETEROL XINAFOATE
     Indication: ASTHMA
     Dosage: DELIVERED BY DRY POWDER INHALER
  3. AZELASTINE. [Concomitant]
     Active Substance: AZELASTINE HYDROCHLORIDE
     Indication: HYPERSENSITIVITY
     Route: 045
  4. IPRATROPIUM [Concomitant]
     Active Substance: IPRATROPIUM
     Indication: HYPERSENSITIVITY
     Route: 045
  5. NIZATIDINE. [Concomitant]
     Active Substance: NIZATIDINE
     Indication: REFLUX LARYNGITIS
     Dosage: AT BEDTIME
     Route: 065
  6. PIRBUTEROL [Suspect]
     Active Substance: PIRBUTEROL
     Indication: ASTHMA
     Dosage: AS NEEDED
  7. LEVOCETIRIZINE [Concomitant]
     Active Substance: LEVOCETIRIZINE
     Indication: HYPERSENSITIVITY
     Route: 065
  8. MONTELUKAST [Concomitant]
     Active Substance: MONTELUKAST SODIUM
     Indication: HYPERSENSITIVITY
     Route: 065

REACTIONS (2)
  - Oral candidiasis [Recovered/Resolved]
  - Paresis [Recovered/Resolved]
